FAERS Safety Report 18722906 (Version 2)
Quarter: 2021Q1

REPORT INFORMATION
  Report Type: Spontaneous
  Country: BE (occurrence: BE)
  Receive Date: 20210111
  Receipt Date: 20210115
  Transmission Date: 20210419
  Serious: Yes (Hospitalization, Other)
  Sender: FDA-Public Use
  Company Number: NVSC2021BE003784

PATIENT
  Sex: Male

DRUGS (1)
  1. ENTRESTO [Suspect]
     Active Substance: SACUBITRIL\VALSARTAN
     Indication: PRODUCT USED FOR UNKNOWN INDICATION
     Dosage: 100 MG, BID (49/51, UNITS UNSPECIFED)
     Route: 065

REACTIONS (4)
  - Acute pulmonary oedema [Unknown]
  - Hypotension [Not Recovered/Not Resolved]
  - Renal impairment [Not Recovered/Not Resolved]
  - Atrial flutter [Unknown]
